FAERS Safety Report 7781540-4 (Version None)
Quarter: 2011Q3

REPORT INFORMATION
  Report Type: 
  Country: None (occurrence: None)
  Receive Date: 20110927
  Receipt Date: 20110921
  Transmission Date: 20111222
  Serious: Yes (Other)
  Sender: FDA-Public Use
  Company Number: US-TEVA-301966USA

PATIENT

DRUGS (1)
  1. COPAXONE [Suspect]
     Indication: MULTIPLE SCLEROSIS
     Route: 058

REACTIONS (5)
  - SOMNOLENCE [None]
  - DRUG INEFFECTIVE [None]
  - PARALYSIS [None]
  - HYPOAESTHESIA [None]
  - PARAESTHESIA [None]
